FAERS Safety Report 8083079-8 (Version None)
Quarter: 2012Q1

REPORT INFORMATION
  Report Type: 
  Country: None (occurrence: None)
  Receive Date: 20120127
  Receipt Date: 20110302
  Transmission Date: 20120608
  Serious: No
  Sender: FDA-Public Use
  Company Number: US-ABBOTT-11P-163-0708810-00

PATIENT
  Sex: Female
  Weight: 66.738 kg

DRUGS (4)
  1. CLOBETASOL [Concomitant]
     Indication: PSORIASIS
  2. LEVOTHYROXINE SODIUM [Concomitant]
     Indication: HYPOTHYROIDISM
  3. HUMIRA [Suspect]
     Indication: PSORIASIS
     Dates: start: 20101101
  4. ZESTRIL [Concomitant]
     Indication: HYPERTENSION

REACTIONS (4)
  - DYSPEPSIA [None]
  - BACK PAIN [None]
  - DEPRESSION [None]
  - DRUG INEFFECTIVE [None]
